FAERS Safety Report 18126406 (Version 3)
Quarter: 2022Q1

REPORT INFORMATION
  Report Type: Report from Study
  Country: DE (occurrence: DE)
  Receive Date: 20200808
  Receipt Date: 20220314
  Transmission Date: 20220424
  Serious: Yes (Other)
  Sender: FDA-Public Use
  Company Number: DE-AMGEN-DEUNI2020128301

PATIENT
  Age: 54 Year
  Sex: Female
  Weight: 68 kg

DRUGS (16)
  1. PANITUMUMAB [Suspect]
     Active Substance: PANITUMUMAB
     Indication: Colorectal cancer metastatic
     Dosage: 410 MILLIGRAM
     Route: 042
     Dates: start: 20200526
  2. LEUCOVORIN [Suspect]
     Active Substance: LEUCOVORIN
     Indication: Colorectal cancer metastatic
     Dosage: 1440 MILLIGRAM
     Route: 065
     Dates: start: 20200428
  3. LEUCOVORIN [Suspect]
     Active Substance: LEUCOVORIN
     Dosage: 715 MILLIGRAM
     Route: 065
     Dates: start: 20200526
  4. LEUCOVORIN [Suspect]
     Active Substance: LEUCOVORIN
     Dosage: 720 MILLIGRAM
     Route: 065
     Dates: start: 20200610
  5. FLUOROURACIL [Suspect]
     Active Substance: FLUOROURACIL
     Indication: Colorectal cancer metastatic
     Dosage: 1440 MILLIGRAM
     Route: 040
     Dates: start: 20200428
  6. FLUOROURACIL [Suspect]
     Active Substance: FLUOROURACIL
     Dosage: 8600 MILLIGRAM
     Route: 042
     Dates: start: 20200428
  7. FLUOROURACIL [Suspect]
     Active Substance: FLUOROURACIL
     Dosage: 4300 MILLIGRAM
     Route: 042
     Dates: start: 20200526
  8. FLUOROURACIL [Suspect]
     Active Substance: FLUOROURACIL
     Dosage: 715 MILLIGRAM
     Route: 040
     Dates: start: 20200526
  9. FLUOROURACIL [Suspect]
     Active Substance: FLUOROURACIL
     Dosage: 720 MILLIGRAM
     Route: 040
     Dates: start: 20200610
  10. IRINOTECAN [Suspect]
     Active Substance: IRINOTECAN
     Indication: Colorectal cancer metastatic
     Dosage: 700 MILLIGRAM
     Route: 065
     Dates: start: 20200428
  11. IRINOTECAN [Suspect]
     Active Substance: IRINOTECAN
     Dosage: 320 MILLIGRAM
     Route: 065
     Dates: start: 20200526
  12. GRANISETRON HAMELN [Concomitant]
     Indication: Vomiting
     Dosage: 4 MILLIGRAM, PER CYCLE
     Route: 042
     Dates: start: 20200428
  13. DEXAMETHASONE [Concomitant]
     Active Substance: DEXAMETHASONE
     Indication: Vomiting
     Dosage: 4 MILLIGRAM PER CYCLE
     Route: 042
     Dates: start: 20200428
  14. DOXYCYCLIN-RATIOPHARM [Concomitant]
     Indication: Rash
     Dosage: 100 MILLIGRAM, BID
     Route: 048
     Dates: start: 20200526, end: 20200624
  15. AKYNZEO [Concomitant]
     Active Substance: NETUPITANT\PALONOSETRON HYDROCHLORIDE
     Indication: Vomiting
     Dosage: 1 UNK  PER CYCLE
     Route: 048
     Dates: start: 20200526
  16. DIMENHYDRINATE [Concomitant]
     Active Substance: DIMENHYDRINATE
     Indication: Vomiting
     Dosage: 1 UNK, AS NECESSARY (PRN)
     Route: 042
     Dates: start: 20200526, end: 20200526

REACTIONS (1)
  - Portal vein thrombosis [Recovered/Resolved]

NARRATIVE: CASE EVENT DATE: 20200729
